FAERS Safety Report 7434239-8 (Version None)
Quarter: 2011Q2

REPORT INFORMATION
  Report Type: 
  Country: None (occurrence: None)
  Receive Date: 20110425
  Receipt Date: 20110419
  Transmission Date: 20111010
  Serious: No
  Sender: FDA-Public Use
  Company Number: US-PFIZER INC-2011052895

PATIENT
  Sex: Female

DRUGS (2)
  1. NORVASC [Suspect]
     Dosage: UNK
  2. INSULIN [Concomitant]
     Dosage: UNK

REACTIONS (6)
  - SENSATION OF HEAVINESS [None]
  - BURNING SENSATION [None]
  - MUSCLE TIGHTNESS [None]
  - OEDEMA PERIPHERAL [None]
  - LIMB DISCOMFORT [None]
  - COUGH [None]
